FAERS Safety Report 26006865 (Version 1)
Quarter: 2025Q4

REPORT INFORMATION
  Report Type: Spontaneous
  Country: US (occurrence: None)
  Receive Date: 20251105
  Receipt Date: 20251105
  Transmission Date: 20260117
  Serious: Yes (Other)
  Sender: FDA-CTU
  Company Number: None

PATIENT
  Age: 64 Year
  Sex: Female
  Weight: 72 kg

DRUGS (8)
  1. TOPIRAMATE [Suspect]
     Active Substance: TOPIRAMATE
     Indication: Seizure
     Dates: start: 20251003, end: 20251026
  2. Levothroxine 88mcg [Concomitant]
  3. DEVICE [Concomitant]
     Active Substance: DEVICE
  4. NITROFURANTOIN [Concomitant]
     Active Substance: NITROFURANTOIN
  5. LAMOTRIGINE [Concomitant]
     Active Substance: LAMOTRIGINE
  6. ESTRADIOL [Concomitant]
     Active Substance: ESTRADIOL
  7. Menaphos-mb-hyo Valacyclovir [Concomitant]
  8. Magnesium glycinate DIM 150 mg [Concomitant]

REACTIONS (3)
  - Dizziness [None]
  - Acute kidney injury [None]
  - Liver injury [None]

NARRATIVE: CASE EVENT DATE: 20251005
